FAERS Safety Report 17349254 (Version 1)
Quarter: 2020Q1

REPORT INFORMATION
  Report Type: Report from Study
  Country: None (occurrence: IE)
  Receive Date: 20200130
  Receipt Date: 20200130
  Transmission Date: 20200409
  Serious: Yes (Other)
  Sender: FDA-Public Use
  Company Number: IE-ABBVIE-20K-229-3254357-00

PATIENT
  Sex: Female

DRUGS (1)
  1. HUMIRA [Suspect]
     Active Substance: ADALIMUMAB
     Indication: RHEUMATOID ARTHRITIS
     Route: 058
     Dates: start: 20190502

REACTIONS (3)
  - Blood test abnormal [Unknown]
  - Lung neoplasm malignant [Unknown]
  - Malaise [Unknown]

NARRATIVE: CASE EVENT DATE: 20191230
